FAERS Safety Report 4748011-0 (Version None)
Quarter: 2005Q3

REPORT INFORMATION
  Report Type: 
  Country: None (occurrence: None)
  Receive Date: 20050815
  Receipt Date: 20050608
  Transmission Date: 20060218
  Serious: No
  Sender: FDA-Public Use
  Company Number: USA0506100071

PATIENT
  Age: 58 Year
  Sex: Male
  Weight: 125 kg

DRUGS (2)
  1. CIALIS [Suspect]
     Indication: ERECTILE DYSFUNCTION
     Dosage: 20 MG
     Dates: start: 20050201
  2. LANTUS(INSULINE GLARGINE) [Concomitant]

REACTIONS (1)
  - STOMACH DISCOMFORT [None]
